FAERS Safety Report 5005935-7 (Version None)
Quarter: 2006Q2

REPORT INFORMATION
  Report Type: 
  Country: None (occurrence: None)
  Receive Date: 20060517
  Receipt Date: 20060517
  Transmission Date: 20061013
  Serious: Yes (Life-Threatening, Hospitalization)
  Sender: FDA-Public Use
  Company Number: None

PATIENT
  Age: 79 Year
  Sex: Female
  Weight: 70 kg

DRUGS (1)
  1. VANCOMYCIN [Suspect]
     Indication: BACTERIA BLOOD IDENTIFIED
     Dosage: 1 GRAM Q24HOURS IV  1 DOSE
     Route: 042
     Dates: start: 20060212, end: 20060212

REACTIONS (6)
  - COUGH [None]
  - DISCOMFORT [None]
  - FLUSHING [None]
  - LARYNGEAL OEDEMA [None]
  - STRIDOR [None]
  - TYPE I HYPERSENSITIVITY [None]
